FAERS Safety Report 5585222-9 (Version None)
Quarter: 2008Q1

REPORT INFORMATION
  Report Type: 
  Country: None (occurrence: None)
  Receive Date: 20080108
  Receipt Date: 20080108
  Transmission Date: 20080703
  Serious: No
  Sender: FDA-Public Use
  Company Number: None

PATIENT
  Age: 79 Year
  Sex: Male

DRUGS (6)
  1. ALLOPURINOL [Suspect]
     Dates: start: 20060424, end: 20060501
  2. COLCHICINE [Concomitant]
  3. SIMVASTATIN [Concomitant]
  4. FELODIPINE [Concomitant]
  5. METFORMIN HCL [Concomitant]
  6. GLYBURIDE [Concomitant]

REACTIONS (2)
  - HEPATITIS ACUTE [None]
  - LIVER INJURY [None]
